FAERS Safety Report 14115036 (Version 1)
Quarter: 2017Q4

REPORT INFORMATION
  Report Type: Spontaneous
  Country: US (occurrence: US)
  Receive Date: 20171023
  Receipt Date: 20171023
  Transmission Date: 20180321
  Serious: No
  Sender: FDA-Public Use
  Company Number: US-ALLERGAN-1679447US

PATIENT
  Sex: Female

DRUGS (2)
  1. LINZESS [Suspect]
     Active Substance: LINACLOTIDE
     Indication: IRRITABLE BOWEL SYNDROME
     Dosage: 145 ?G, UNK
     Route: 048
     Dates: start: 20161127
  2. LINZESS [Suspect]
     Active Substance: LINACLOTIDE
     Dosage: 290 ?G, UNK
     Route: 048
     Dates: start: 2016, end: 2016

REACTIONS (6)
  - Infrequent bowel movements [Recovered/Resolved]
  - Eating disorder [Recovered/Resolved]
  - Expired product administered [Unknown]
  - Faecal volume decreased [Recovered/Resolved]
  - Off label use [Unknown]
  - Faeces hard [Recovered/Resolved]

NARRATIVE: CASE EVENT DATE: 2016
